FAERS Safety Report 21112723 (Version 1)
Quarter: 2022Q3

REPORT INFORMATION
  Report Type: Spontaneous
  Country: US (occurrence: None)
  Receive Date: 20220721
  Receipt Date: 20220721
  Transmission Date: 20221027
  Serious: Yes (Hospitalization)
  Sender: FDA-Public Use
  Company Number: None

PATIENT
  Age: 58 Year
  Sex: Male

DRUGS (1)
  1. APIXABAN [Suspect]
     Active Substance: APIXABAN
     Indication: Deep vein thrombosis
     Dosage: FREQUENCY : TWICE A DAY;?
     Route: 048
     Dates: start: 20211003

REACTIONS (5)
  - Loss of consciousness [None]
  - Fall [None]
  - Head injury [None]
  - Muscular weakness [None]
  - Transient ischaemic attack [None]

NARRATIVE: CASE EVENT DATE: 20220705
